FAERS Safety Report 8008397-0 (Version None)
Quarter: 2011Q4

REPORT INFORMATION
  Report Type: 
  Country: None (occurrence: None)
  Receive Date: 20111227
  Receipt Date: 20111216
  Transmission Date: 20120403
  Serious: Yes (Death)
  Sender: FDA-Public Use
  Company Number: JP-ROCHE-1016362

PATIENT
  Sex: Female

DRUGS (6)
  1. ACTEMRA [Suspect]
     Route: 041
     Dates: start: 20090129, end: 20090129
  2. PREDNISOLONE [Concomitant]
     Indication: RHEUMATOID ARTHRITIS
     Route: 048
     Dates: start: 20070308, end: 20090119
  3. RANTAC [Concomitant]
     Indication: PROPHYLAXIS
     Route: 048
     Dates: start: 20070308, end: 20090119
  4. ACTEMRA [Suspect]
     Indication: RHEUMATOID ARTHRITIS
     Route: 041
     Dates: start: 20081224, end: 20081224
  5. PREDNISOLONE [Concomitant]
     Dosage: UNCERTAIN DOSAGE (5MG OR MORE)
     Route: 048
  6. METALCAPTASE [Concomitant]
     Indication: RHEUMATOID ARTHRITIS
     Route: 048
     Dates: start: 20070308, end: 20090119

REACTIONS (2)
  - DEATH [None]
  - HERPES SIMPLEX [None]
